FAERS Safety Report 20815013 (Version 1)
Quarter: 2022Q2

REPORT INFORMATION
  Report Type: Report from Study
  Country: JP (occurrence: JP)
  Receive Date: 20220511
  Receipt Date: 20220511
  Transmission Date: 20220721
  Serious: Yes (Other)
  Sender: FDA-Public Use
  Company Number: JP-002147023-NVSJ2022JP089616

PATIENT

DRUGS (1)
  1. RUXOLITINIB [Suspect]
     Active Substance: RUXOLITINIB
     Indication: Myelofibrosis
     Dosage: UNK, BID
     Route: 048

REACTIONS (14)
  - Abdominal discomfort [Unknown]
  - Abdominal pain [Unknown]
  - Thrombosis [Unknown]
  - Early satiety [Unknown]
  - Fatigue [Unknown]
  - Decreased activity [Unknown]
  - Drug ineffective [Unknown]
  - Abnormal loss of weight [Unknown]
  - Anaemia [Unknown]
  - Contusion [Unknown]
  - Depression [Unknown]
  - Insomnia [Unknown]
  - Quality of life decreased [Unknown]
  - Visual impairment [Unknown]
